FAERS Safety Report 17083918 (Version 1)
Quarter: 2019Q4

REPORT INFORMATION
  Report Type: Spontaneous
  Country: FR (occurrence: FR)
  Receive Date: 20191127
  Receipt Date: 20191127
  Transmission Date: 20200122
  Serious: Yes (Other)
  Sender: FDA-Public Use
  Company Number: NVSC2019FR045231

PATIENT
  Age: 83 Year
  Sex: Male
  Weight: 80 kg

DRUGS (4)
  1. CELLCEPT [Concomitant]
     Active Substance: MYCOPHENOLATE MOFETIL\MYCOPHENOLATE MOFETIL HYDROCHLORIDE
     Indication: IMMUNOSUPPRESSION
     Dosage: 1500 OT, QD
     Route: 065
     Dates: start: 20160830, end: 20170601
  2. NEORAL [Concomitant]
     Active Substance: CYCLOSPORINE
     Indication: IMMUNOSUPPRESSION
     Dosage: 150 OT, QD
     Route: 065
     Dates: start: 20170510
  3. CELLCEPT [Concomitant]
     Active Substance: MYCOPHENOLATE MOFETIL\MYCOPHENOLATE MOFETIL HYDROCHLORIDE
     Dosage: 1000 OT, QD
     Route: 065
     Dates: start: 20170602
  4. TACROLIMUS. [Suspect]
     Active Substance: TACROLIMUS
     Indication: PROPHYLAXIS AGAINST TRANSPLANT REJECTION
     Dosage: 1.5 MG, QD
     Route: 048
     Dates: start: 20160816, end: 20170610

REACTIONS (1)
  - BK polyomavirus test positive [Recovered/Resolved]

NARRATIVE: CASE EVENT DATE: 20170601
